FAERS Safety Report 10530007 (Version 1)
Quarter: 2014Q4

REPORT INFORMATION
  Report Type: Spontaneous
  Country: PE (occurrence: PE)
  Receive Date: 20141021
  Receipt Date: 20141021
  Transmission Date: 20150528
  Serious: Yes (Other)
  Sender: FDA-Public Use
  Company Number: PE-TEVA-516225ISR

PATIENT
  Age: 28 Year
  Sex: Male
  Weight: 58 kg

DRUGS (1)
  1. DOLO LIVIOLEX [Suspect]
     Active Substance: DICLOFENAC DIETHYLAMINE
     Dosage: 75 MILLIGRAM DAILY; INDIVIDUAL DOSE: 75MG/3ML SOLUTION FOR INJECTION
     Route: 030
     Dates: start: 20140203, end: 20140303

REACTIONS (2)
  - Nephrolithiasis [Unknown]
  - Dysuria [Unknown]

NARRATIVE: CASE EVENT DATE: 20140203
